FAERS Safety Report 7461202-3 (Version None)
Quarter: 2011Q2

REPORT INFORMATION
  Report Type: 
  Country: None (occurrence: None)
  Receive Date: 20110505
  Receipt Date: 20110426
  Transmission Date: 20111010
  Serious: Yes (Hospitalization)
  Sender: FDA-Public Use
  Company Number: FR-ASTRAZENECA-2011SE24545

PATIENT
  Age: 72 Year
  Sex: Female

DRUGS (10)
  1. CORDARONE [Concomitant]
  2. TAREG [Concomitant]
  3. ALLOPURINOL [Concomitant]
     Dates: end: 20110407
  4. INNOVAIR [Concomitant]
  5. KETAMINE HCL [Suspect]
     Indication: CENTRAL VENOUS CATHETERISATION
     Route: 042
     Dates: start: 20110401
  6. LOVENOX [Concomitant]
  7. XYLOCAINE [Suspect]
     Indication: CENTRAL VENOUS CATHETERISATION
     Route: 061
     Dates: start: 20110401, end: 20110401
  8. VANCOMYCINE SANDOZ [Suspect]
     Indication: INFECTION
     Route: 042
     Dates: start: 20110306, end: 20110401
  9. MIDAZOLAM PANPHARMA [Suspect]
     Indication: CENTRAL VENOUS CATHETERISATION
     Route: 042
     Dates: start: 20110401
  10. PREVISCAN [Concomitant]

REACTIONS (1)
  - RASH [None]
